FAERS Safety Report 5574451-6 (Version None)
Quarter: 2007Q4

REPORT INFORMATION
  Report Type: 
  Country: None (occurrence: None)
  Receive Date: 20071226
  Receipt Date: 20071226
  Transmission Date: 20080405
  Serious: Yes (Other)
  Sender: FDA-Public Use
  Company Number: None

PATIENT
  Sex: Male
  Weight: 84.8226 kg

DRUGS (1)
  1. ZOLOFT [Suspect]

REACTIONS (3)
  - AGGRESSION [None]
  - DRUG DOSE OMISSION [None]
  - IRRITABILITY [None]
